FAERS Safety Report 7067379-6 (Version None)
Quarter: 2010Q4

REPORT INFORMATION
  Report Type: 
  Country: None (occurrence: None)
  Receive Date: 20101028
  Receipt Date: 20101018
  Transmission Date: 20110411
  Serious: Yes (Hospitalization)
  Sender: FDA-Public Use
  Company Number: JP-RB-014476-10

PATIENT
  Sex: Male

DRUGS (2)
  1. LEPETAN INJECTION [Suspect]
     Dosage: BIW, DOSE UNKNOWN
     Route: 030
  2. LEPETAN INJECTION [Suspect]
     Indication: PROCEDURAL PAIN
     Dosage: UNKNOWN DAILY DOSE
     Route: 030
     Dates: end: 20100801

REACTIONS (6)
  - DELUSION [None]
  - DEPENDENCE [None]
  - DRUG TOXICITY [None]
  - HALLUCINATION, AUDITORY [None]
  - IRRITABILITY [None]
  - PERSECUTORY DELUSION [None]
